FAERS Safety Report 8897401 (Version 1)
Quarter: 2012Q4

REPORT INFORMATION
  Report Type: 
  Country: US (occurrence: US)
  Receive Date: 20121108
  Receipt Date: 20121108
  Transmission Date: 20130627
  Serious: No
  Sender: FDA-Public Use
  Company Number: US-AMGEN-USASP2012012114

PATIENT
  Age: 48 Year
  Sex: Female

DRUGS (5)
  1. ENBREL [Suspect]
     Indication: PRODUCT USED FOR UNKNOWN INDICATION
     Dosage: 50 mg, qwk
     Route: 058
  2. CELEBREX [Concomitant]
     Dosage: 50 mg, UNK
  3. SYNTHROID [Concomitant]
     Dosage: 1 mg, UNK
  4. VITAMIN D /00107901/ [Concomitant]
  5. B12-VITAMIN [Concomitant]

REACTIONS (3)
  - Mechanical urticaria [Unknown]
  - Bronchitis [Unknown]
  - Pharyngitis streptococcal [Unknown]
